FAERS Safety Report 12321191 (Version 1)
Quarter: 2016Q2

REPORT INFORMATION
  Report Type: Spontaneous
  Country: FR (occurrence: FR)
  Receive Date: 20160502
  Receipt Date: 20160502
  Transmission Date: 20160815
  Serious: Yes (Other)
  Sender: FDA-Public Use
  Company Number: FR-ACCORD-040204

PATIENT
  Age: 36 Year
  Sex: Male

DRUGS (3)
  1. ETOPOSIDE TEVA [Suspect]
     Active Substance: ETOPOSIDE
     Indication: TESTIS CANCER
     Dosage: FROM 23-NOV-2015 TO 09-DEC-2015 SECOND CYCLE WAS GIVEN. ETOPOSIDE WAS GIVEN UNTIL 18-DEC-2015.
     Route: 042
     Dates: start: 20151103, end: 20151218
  2. BLEOMYCIN BELLON [Suspect]
     Active Substance: BLEOMYCIN SULFATE
     Indication: TESTIS CANCER
     Dosage: STRENGTH: 15 MG, FROM 23-NOV-2015 TO 09-DEC-2015 SECOND CYCLE AND 14-DEC TO 28-DEC-2015, THIRD CYCLE
     Route: 042
     Dates: start: 20151103, end: 20151228
  3. CISPLATIN ACCORD [Suspect]
     Active Substance: CISPLATIN
     Indication: TESTIS CANCER
     Dosage: FROM 23-NOV-2015 TO 09-DEC-2015 SECOND CYCLE WAS GIVEN. CISPLATIN WAS GIVEN UNTIL 18-DEC-2015
     Route: 042
     Dates: start: 20151103, end: 20151218

REACTIONS (1)
  - Organising pneumonia [Recovering/Resolving]

NARRATIVE: CASE EVENT DATE: 201601
